FAERS Safety Report 16961796 (Version 1)
Quarter: 2019Q4

REPORT INFORMATION
  Report Type: Spontaneous
  Country: IT (occurrence: IT)
  Receive Date: 20191025
  Receipt Date: 20191025
  Transmission Date: 20200122
  Serious: Yes (Other)
  Sender: FDA-Public Use
  Company Number: IT-PFIZER INC-2019457358

PATIENT
  Age: 65 Year
  Sex: Female

DRUGS (1)
  1. CARBOPLATINO PFIZER ITALIA [Suspect]
     Active Substance: CARBOPLATIN
     Dosage: 450 MG, TOTAL
     Route: 042
     Dates: start: 20191001, end: 20191001

REACTIONS (6)
  - Vomiting [Recovered/Resolved]
  - Erythema [Recovered/Resolved]
  - Cold sweat [Recovered/Resolved]
  - Blindness transient [Recovered/Resolved]
  - Loss of consciousness [Recovered/Resolved]
  - Throat tightness [Recovered/Resolved]

NARRATIVE: CASE EVENT DATE: 20191001
